FAERS Safety Report 15243770 (Version 1)
Quarter: 2018Q3

REPORT INFORMATION
  Report Type: Report from Study
  Country: US (occurrence: US)
  Receive Date: 20180806
  Receipt Date: 20180806
  Transmission Date: 20181010
  Serious: Yes (Other)
  Sender: FDA-Public Use
  Company Number: US-SA-2018SA206539

PATIENT
  Age: 83 Year
  Sex: Male

DRUGS (2)
  1. INSULIN GLARGINE [Suspect]
     Active Substance: INSULIN GLARGINE
     Indication: DIABETES MELLITUS
     Dosage: 26 U, BID
     Route: 051
  2. APIDRA [Suspect]
     Active Substance: INSULIN GLULISINE
     Dosage: SOMETIMES ONLY ONCE EVERY FEW DAYS
     Route: 051
     Dates: start: 201803

REACTIONS (6)
  - Blood cholesterol increased [Not Recovered/Not Resolved]
  - Dementia [Not Recovered/Not Resolved]
  - Vitamin D deficiency [Not Recovered/Not Resolved]
  - Blood pressure increased [Not Recovered/Not Resolved]
  - Sleep apnoea syndrome [Not Recovered/Not Resolved]
  - Urinary retention [Not Recovered/Not Resolved]
